FAERS Safety Report 21666096 (Version 12)
Quarter: 2023Q1

REPORT INFORMATION
  Report Type: Report from Study
  Country: BR (occurrence: None)
  Receive Date: 20221201
  Receipt Date: 20230321
  Transmission Date: 20230417
  Serious: Yes (Hospitalization)
  Sender: FDA-Public Use
  Company Number: BR-ROCHE-2564961

PATIENT
  Age: 48 Year
  Sex: Male
  Weight: 67 kg

DRUGS (81)
  1. PLACEBO [Suspect]
     Active Substance: UNSPECIFIED INGREDIENT
     Indication: Relapsing-remitting multiple sclerosis
     Dosage: WEEK 1?DUAL INFUSIONS ON DAYS 1 AND 15 FOR THE FIRST DOSE AND AS A SINGLE INFUSION FOR ALL SUBSEQUEN
     Route: 042
     Dates: start: 20130215, end: 20130215
  2. PLACEBO [Suspect]
     Active Substance: UNSPECIFIED INGREDIENT
     Dosage: WEEK 2
     Route: 042
     Dates: start: 20130227, end: 20130227
  3. PLACEBO [Suspect]
     Active Substance: UNSPECIFIED INGREDIENT
     Dosage: WEEK 24
     Route: 042
     Dates: start: 20130802, end: 20130802
  4. PLACEBO [Suspect]
     Active Substance: UNSPECIFIED INGREDIENT
     Dosage: WEEK 48
     Route: 042
     Dates: start: 20140114, end: 20140114
  5. PLACEBO [Suspect]
     Active Substance: UNSPECIFIED INGREDIENT
     Dosage: WEEK 72
     Route: 042
     Dates: start: 20140704, end: 20140704
  6. INTERFERON BETA-1A [Suspect]
     Active Substance: INTERFERON BETA-1A
     Indication: Relapsing-remitting multiple sclerosis
     Dosage: NEXT DOSE WAS RECEIVED ON 19/DEC/2014?MOST RECENT DOSE PRIOR TO ADVERSE EVENT 05/JAN/2015
     Route: 058
     Dates: start: 20130215
  7. INTERFERON BETA-1A [Suspect]
     Active Substance: INTERFERON BETA-1A
     Route: 058
     Dates: start: 20130227, end: 20130507
  8. OCRELIZUMAB [Suspect]
     Active Substance: OCRELIZUMAB
     Indication: Relapsing-remitting multiple sclerosis
     Dosage: OLE-WEEK 0?300 MG INFUSIONS ON DAYS 1 AND 15 FOR THE FIRST DOSE AND AS A SINGLE INFUSION OF 600 MG F
     Route: 042
     Dates: start: 20150107, end: 20150107
  9. OCRELIZUMAB [Suspect]
     Active Substance: OCRELIZUMAB
     Dosage: OLE-WEEK 2
     Route: 042
     Dates: start: 20150122, end: 20150122
  10. OCRELIZUMAB [Suspect]
     Active Substance: OCRELIZUMAB
     Dosage: OLE-WEEK 24
     Route: 042
     Dates: start: 20150623, end: 20150623
  11. OCRELIZUMAB [Suspect]
     Active Substance: OCRELIZUMAB
     Dosage: OLE-WEEK 48
     Route: 042
     Dates: start: 20151210, end: 20151210
  12. OCRELIZUMAB [Suspect]
     Active Substance: OCRELIZUMAB
     Dosage: OLE-WEEK 72
     Route: 042
     Dates: start: 20160530, end: 20160530
  13. OCRELIZUMAB [Suspect]
     Active Substance: OCRELIZUMAB
     Dosage: OLE-WEEK 96
     Route: 042
     Dates: start: 20161109, end: 20161109
  14. OCRELIZUMAB [Suspect]
     Active Substance: OCRELIZUMAB
     Dosage: OLE-WEEK 120
     Route: 042
     Dates: start: 20170419, end: 20170419
  15. OCRELIZUMAB [Suspect]
     Active Substance: OCRELIZUMAB
     Dosage: OLE-WEEK 144
     Route: 042
     Dates: start: 20171011, end: 20171011
  16. OCRELIZUMAB [Suspect]
     Active Substance: OCRELIZUMAB
     Dosage: OLE-WEEK 168
     Route: 042
     Dates: start: 20180329, end: 20180329
  17. OCRELIZUMAB [Suspect]
     Active Substance: OCRELIZUMAB
     Dosage: OLE-WEEK 192
     Route: 042
     Dates: start: 20180913, end: 20180913
  18. OCRELIZUMAB [Suspect]
     Active Substance: OCRELIZUMAB
     Dosage: OLE-WEEK 216
     Route: 042
     Dates: start: 20190227, end: 20190227
  19. OCRELIZUMAB [Suspect]
     Active Substance: OCRELIZUMAB
     Dosage: OLE-WEEK 240
     Route: 042
     Dates: start: 20190820, end: 20190820
  20. OCRELIZUMAB [Suspect]
     Active Substance: OCRELIZUMAB
     Dosage: OLE-WEEK 264
     Route: 042
     Dates: start: 20200129, end: 20200129
  21. OCRELIZUMAB [Suspect]
     Active Substance: OCRELIZUMAB
     Dosage: OLE-WEEK 288
     Route: 042
     Dates: start: 20200715, end: 20200715
  22. OCRELIZUMAB [Suspect]
     Active Substance: OCRELIZUMAB
     Dosage: OLE-WEEK 312
     Route: 042
     Dates: start: 20201217, end: 20201217
  23. OCRELIZUMAB [Suspect]
     Active Substance: OCRELIZUMAB
     Dosage: OLE-WEEK 336
     Route: 042
     Dates: start: 20210630, end: 20210630
  24. OCRELIZUMAB [Suspect]
     Active Substance: OCRELIZUMAB
     Dosage: OLE-WEEK 360
     Route: 042
     Dates: start: 20211201, end: 20211201
  25. OCRELIZUMAB [Suspect]
     Active Substance: OCRELIZUMAB
     Route: 042
     Dates: start: 20220518, end: 20220518
  26. ACETAMINOPHEN [Concomitant]
     Active Substance: ACETAMINOPHEN
     Indication: Premedication
     Dates: start: 20130215
  27. ACETAMINOPHEN [Concomitant]
     Active Substance: ACETAMINOPHEN
     Indication: Influenza
     Dosage: SUBSEQUENT DOSES ON 07/JAN/2015, 22/JAN/2015, 23/JUN/2015, 10/DEC/2015, 30/MAY/2016, 09/NOV/2016, 19
     Dates: start: 20130227
  28. ACETAMINOPHEN [Concomitant]
     Active Substance: ACETAMINOPHEN
     Dates: start: 20140422, end: 20140426
  29. POLARAMINE [Concomitant]
     Active Substance: DEXCHLORPHENIRAMINE MALEATE
     Indication: Premedication
     Dates: start: 20130215
  30. METHYLPREDNISOLONE [Concomitant]
     Active Substance: METHYLPREDNISOLONE
     Indication: Premedication
     Dates: start: 20130215
  31. METHYLPREDNISOLONE [Concomitant]
     Active Substance: METHYLPREDNISOLONE
     Dates: start: 20130227
  32. METHYLPREDNISOLONE [Concomitant]
     Active Substance: METHYLPREDNISOLONE
     Dates: start: 20130802
  33. METHYLPREDNISOLONE [Concomitant]
     Active Substance: METHYLPREDNISOLONE
     Dates: start: 20140114, end: 20140114
  34. METHYLPREDNISOLONE [Concomitant]
     Active Substance: METHYLPREDNISOLONE
     Dosage: SUBSEQUENT DOSES ON 07/JAN/2015, 22/JAN/2015, 23/JUN/2015, 10/DEC/2015, 30/MAY/2016, 09/NOV/2016, 19
     Dates: start: 20140704, end: 20140704
  35. METHYLPREDNISOLONE [Concomitant]
     Active Substance: METHYLPREDNISOLONE
     Dates: start: 20131111, end: 20131115
  36. HYDROXYZINE [Concomitant]
     Active Substance: HYDROXYZINE HYDROCHLORIDE
     Indication: Premedication
     Dates: start: 20130227
  37. LORATADINE [Concomitant]
     Active Substance: LORATADINE
     Indication: Premedication
     Dates: start: 20130802
  38. TYLENOL [Concomitant]
     Active Substance: ACETAMINOPHEN
     Indication: Premedication
     Dates: start: 20130802
  39. LORATADINE [Concomitant]
     Active Substance: LORATADINE
     Indication: Premedication
     Dosage: SUBSEQUENT DOSES ON  22/JAN/2015, 23/JUN/2015, 10/DEC/2015, 30/MAY/2016, 09/NOV/2016, 19/APR/2017, 1
     Dates: start: 20150107
  40. METRONIDAZOLE [Concomitant]
     Active Substance: METRONIDAZOLE
     Indication: Diarrhoea
     Dates: start: 20190919
  41. OXYBUTYNIN [Concomitant]
     Active Substance: OXYBUTYNIN
     Indication: Neurogenic bladder
     Dates: start: 201401, end: 20140702
  42. OXYBUTYNIN [Concomitant]
     Active Substance: OXYBUTYNIN
     Indication: Urinary incontinence
     Dates: start: 20190813
  43. OXYBUTYNIN [Concomitant]
     Active Substance: OXYBUTYNIN
     Dates: start: 20110214, end: 20130414
  44. OXYBUTYNIN [Concomitant]
     Active Substance: OXYBUTYNIN
     Dates: start: 20140703, end: 20141118
  45. OXYBUTYNIN [Concomitant]
     Active Substance: OXYBUTYNIN
     Dates: start: 201401, end: 20140702
  46. VIAGRA [Concomitant]
     Active Substance: SILDENAFIL CITRATE
     Indication: Erectile dysfunction
     Dates: start: 20110214
  47. CIALIS [Concomitant]
     Active Substance: TADALAFIL
     Indication: Erectile dysfunction
     Dates: start: 20130507
  48. GARASONE [Concomitant]
     Active Substance: BETAMETHASONE SODIUM PHOSPHATE\GENTAMICIN SULFATE
     Indication: Conjunctivitis
     Dosage: 1 DROP
     Dates: start: 20190924
  49. ZINC [Concomitant]
     Active Substance: ZINC
     Indication: Asthenia
     Dosage: SYMPTOMS OF?MS - WEAKNESS
     Dates: start: 20200824, end: 20200831
  50. ESCITALOPRAM [Concomitant]
     Active Substance: ESCITALOPRAM OXALATE
     Indication: Behaviour disorder
     Dates: start: 20220126
  51. RISPERIDONE [Concomitant]
     Active Substance: RISPERIDONE
     Indication: Behaviour disorder
     Dates: start: 20220126
  52. RISPERIDONE [Concomitant]
     Active Substance: RISPERIDONE
     Dates: start: 20230103
  53. LEVOFLOXACIN [Concomitant]
     Active Substance: LEVOFLOXACIN
     Indication: Infection
     Dates: start: 20210805, end: 20210811
  54. CIPROFLOXACIN HYDROCHLORIDE [Concomitant]
     Active Substance: CIPROFLOXACIN HYDROCHLORIDE
     Indication: Urinary tract infection
     Dates: start: 20220614, end: 20220621
  55. DIPYRONE [Concomitant]
     Active Substance: DIPYRONE
     Indication: Pyrexia
     Dates: start: 20220923, end: 20221003
  56. DIPYRONE [Concomitant]
     Active Substance: DIPYRONE
     Indication: Pain
  57. BUTYLSCOPOLAMINE BROMIDE [Concomitant]
     Active Substance: BUTYLSCOPOLAMINE BROMIDE
     Indication: Abdominal pain
     Dates: start: 20221003, end: 20221003
  58. TRAMADOL [Concomitant]
     Active Substance: TRAMADOL
     Indication: Pain
     Dates: start: 20220923, end: 20221003
  59. PIPERACILLIN SODIUM\TAZOBACTAM SODIUM [Concomitant]
     Active Substance: PIPERACILLIN SODIUM\TAZOBACTAM SODIUM
     Indication: Pneumonia
     Dates: start: 20220928, end: 20221003
  60. PANTOPRAZOLE [Concomitant]
     Active Substance: PANTOPRAZOLE
     Dates: start: 20220924, end: 20221003
  61. ENOXAPARIN SODIUM [Concomitant]
     Active Substance: ENOXAPARIN SODIUM
     Dates: start: 20220924, end: 20221003
  62. ENOXAPARIN SODIUM [Concomitant]
     Active Substance: ENOXAPARIN SODIUM
     Dates: start: 20221011
  63. BUDESONIDE [Concomitant]
     Active Substance: BUDESONIDE
     Indication: Cough
     Dates: start: 20221101, end: 20221111
  64. FORMOTEROL FUMARATE [Concomitant]
     Active Substance: FORMOTEROL FUMARATE
     Indication: Cough
     Dates: start: 20221101, end: 20221111
  65. HYDROCORTISONE [Concomitant]
     Active Substance: HYDROCORTISONE
     Dates: start: 20221105, end: 20221110
  66. PREDNISOLONE [Concomitant]
     Active Substance: PREDNISOLONE
     Dates: start: 20221111, end: 20221117
  67. ERTAPENEM [Concomitant]
     Active Substance: ERTAPENEM
     Dates: start: 20221019, end: 20221024
  68. AMPICILLIN [Concomitant]
     Active Substance: AMPICILLIN
     Dates: start: 20221101
  69. SULBACTAM [Concomitant]
     Active Substance: SULBACTAM
     Dates: start: 20221101
  70. RIFAMPIN [Concomitant]
     Active Substance: RIFAMPIN
     Indication: Tuberculosis bladder
     Dates: start: 20221214
  71. ETHAMBUTOL [Concomitant]
     Active Substance: ETHAMBUTOL HYDROCHLORIDE
     Indication: Tuberculosis bladder
     Dates: start: 20221214
  72. ISONIAZID [Concomitant]
     Active Substance: ISONIAZID
     Indication: Tuberculosis bladder
     Dates: start: 20221214
  73. PYRAZINAMIDE [Concomitant]
     Active Substance: PYRAZINAMIDE
     Indication: Tuberculosis bladder
     Dates: start: 20221214
  74. FUROSEMIDE [Concomitant]
     Active Substance: FUROSEMIDE
     Dates: start: 20230111, end: 20230112
  75. DIMENHYDRINATE [Concomitant]
     Active Substance: DIMENHYDRINATE
     Dates: start: 20230103, end: 20230103
  76. TRAMADOL [Concomitant]
     Active Substance: TRAMADOL
     Indication: Pain
  77. CEFTRIAXONE [Concomitant]
     Active Substance: CEFTRIAXONE
     Indication: Peritonitis
     Dates: start: 20230103, end: 20230112
  78. METRONIDAZOLE [Concomitant]
     Active Substance: METRONIDAZOLE
     Indication: Peritonitis
     Dates: start: 20230103, end: 20230112
  79. ONDANSETRON HYDROCHLORIDE [Concomitant]
     Active Substance: ONDANSETRON HYDROCHLORIDE
  80. ONDANSETRON HYDROCHLORIDE [Concomitant]
     Active Substance: ONDANSETRON HYDROCHLORIDE
     Dates: start: 20230103, end: 20230112
  81. ENOXAPARIN SODIUM [Concomitant]
     Active Substance: ENOXAPARIN SODIUM
     Dates: start: 20230111, end: 20230112

REACTIONS (5)
  - Urinary tract infection [Recovered/Resolved]
  - Dengue fever [Recovered/Resolved]
  - Pneumonia [Recovered/Resolved with Sequelae]
  - Systemic candida [Recovered/Resolved]
  - Tuberculosis bladder [Recovered/Resolved]

NARRATIVE: CASE EVENT DATE: 20200303
